FAERS Safety Report 7685886-X (Version None)
Quarter: 2011Q3

REPORT INFORMATION
  Report Type: 
  Country: None (occurrence: None)
  Receive Date: 20110816
  Receipt Date: 20110812
  Transmission Date: 20111222
  Serious: Yes (Death, Other)
  Sender: FDA-Public Use
  Company Number: FR-TEVA-284271USA

PATIENT
  Sex: Female

DRUGS (10)
  1. AMIODARONE HCL [Concomitant]
     Indication: INTENSIVE CARE
  2. ETOMIDATE [Concomitant]
     Indication: ANAESTHESIA
  3. MIDAZOLAM HCL [Concomitant]
     Indication: INTENSIVE CARE
  4. ACETAMINOPHEN [Concomitant]
  5. PIMOZIDE TABLETS [Suspect]
     Indication: PRODUCT USED FOR UNKNOWN INDICATION
  6. HYDROCHLOROTHIAZIDE [Concomitant]
  7. MIDAZOLAM HCL [Concomitant]
     Indication: ANAESTHESIA
  8. MORPHINE [Concomitant]
     Indication: INTENSIVE CARE
  9. EPHEDRINE [Concomitant]
     Indication: INTENSIVE CARE
  10. ETOMIDATE [Concomitant]
     Indication: INTENSIVE CARE

REACTIONS (2)
  - DRUG LEVEL INCREASED [None]
  - ROAD TRAFFIC ACCIDENT [None]
